FAERS Safety Report 6168332-7 (Version None)
Quarter: 2009Q2

REPORT INFORMATION
  Report Type: 
  Country: None (occurrence: None)
  Receive Date: 20090427
  Receipt Date: 20090416
  Transmission Date: 20091009
  Serious: Yes (Life-Threatening, Hospitalization)
  Sender: FDA-Public Use
  Company Number: JP-PFIZER INC-2009192873

PATIENT

DRUGS (12)
  1. SUNITINIB MALATE [Suspect]
     Indication: RENAL CELL CARCINOMA
     Dosage: 50 MG, 1X/DAY
     Route: 048
     Dates: start: 20081024, end: 20090328
  2. ASPENON [Concomitant]
     Route: 048
  3. URINORM [Concomitant]
     Route: 048
  4. MOBIC [Concomitant]
     Dosage: UNK
     Route: 048
  5. CRAVIT [Concomitant]
     Route: 048
     Dates: start: 20081022
  6. AMLODIPINE [Concomitant]
     Dosage: UNK
     Route: 048
  7. MICARDIS [Concomitant]
     Dosage: UNK
     Route: 048
     Dates: start: 20081103
  8. THYRADIN [Concomitant]
     Dosage: UNK
     Route: 048
     Dates: start: 20081111
  9. FLUITRAN [Concomitant]
     Dosage: UNK
     Route: 048
     Dates: start: 20081129
  10. TAKA-DIASTASE [Concomitant]
     Dosage: UNK
     Route: 048
     Dates: start: 20081107
  11. LAC B [Concomitant]
     Dosage: UNK
     Route: 048
     Dates: start: 20090318
  12. GASTER [Suspect]
     Dosage: UNK
     Route: 048
     Dates: start: 20090318

REACTIONS (3)
  - GASTROINTESTINAL PERFORATION [None]
  - PERITONITIS [None]
  - PLATELET COUNT DECREASED [None]
